FAERS Safety Report 7776331-4 (Version None)
Quarter: 2011Q3

REPORT INFORMATION
  Report Type: 
  Country: None (occurrence: None)
  Receive Date: 20110921
  Receipt Date: 20110921
  Transmission Date: 20111222
  Serious: Yes (Hospitalization)
  Sender: FDA-Public Use
  Company Number: None

PATIENT
  Sex: Female
  Weight: 51 kg

DRUGS (12)
  1. CARBOPLATIN [Suspect]
     Indication: BREAST CANCER
     Dosage: Q3 WKS IV
     Route: 042
     Dates: start: 20110902
  2. METAMUCIL-2 [Concomitant]
  3. ASPIRIN [Concomitant]
  4. ABRAXANE [Suspect]
     Indication: BREAST CANCER
     Dosage: WKLY IV
     Route: 042
     Dates: start: 20110908
  5. ABRAXANE [Suspect]
     Indication: BREAST CANCER
     Dosage: WKLY IV
     Route: 042
     Dates: start: 20110902
  6. ABRAXANE [Suspect]
     Indication: BREAST CANCER
     Dosage: WKLY IV
     Route: 042
     Dates: start: 20110913
  7. ALBUTERAL INHALER [Concomitant]
  8. TIOTROPIUM [Concomitant]
  9. LOPERAMIDE HCL [Concomitant]
  10. PROCHLORAPERAZINE [Concomitant]
  11. FLUTICASONE HFA [Concomitant]
  12. PANTOPRAZOLE [Concomitant]

REACTIONS (8)
  - DIARRHOEA [None]
  - CULTURE URINE POSITIVE [None]
  - URINARY TRACT INFECTION BACTERIAL [None]
  - NAUSEA [None]
  - FATIGUE [None]
  - ABDOMINAL PAIN [None]
  - NEUTROPENIA [None]
  - VOMITING [None]
